FAERS Safety Report 20737588 (Version 1)
Quarter: 2022Q2

REPORT INFORMATION
  Report Type: Report from Study
  Country: JP (occurrence: JP)
  Receive Date: 20220422
  Receipt Date: 20220422
  Transmission Date: 20220721
  Serious: Yes (Other)
  Sender: FDA-Public Use
  Company Number: JP-CELLTRION INC.-2020JP024479

PATIENT

DRUGS (9)
  1. INFLIXIMAB-DYYB [Suspect]
     Active Substance: INFLIXIMAB-DYYB
     Indication: Crohn^s disease
     Dosage: 530 MILLIGRAM (WEIGHT: 53 KG)
     Route: 041
     Dates: start: 20181128, end: 20181128
  2. INFLIXIMAB-DYYB [Suspect]
     Active Substance: INFLIXIMAB-DYYB
     Dosage: 530 MILLIGRAM (WEIGHT: 53 KG)
     Route: 041
     Dates: start: 20190130, end: 20190130
  3. INFLIXIMAB-DYYB [Suspect]
     Active Substance: INFLIXIMAB-DYYB
     Dosage: 556 MILLIGRAM (WEIGHT: 55.6 KG)
     Route: 041
     Dates: start: 20190325, end: 20190325
  4. INFLIXIMAB-DYYB [Suspect]
     Active Substance: INFLIXIMAB-DYYB
     Dosage: 570 MILLIGRAM (WEIGHT: 57 KG)
     Route: 041
     Dates: start: 20190513, end: 20190513
  5. INFLIXIMAB-DYYB [Suspect]
     Active Substance: INFLIXIMAB-DYYB
     Dosage: 570 MILLIGRAM (WEIGHT: 57 KG)
     Route: 041
     Dates: start: 20191223, end: 20191223
  6. INFLIXIMAB-DYYB [Suspect]
     Active Substance: INFLIXIMAB-DYYB
     Dosage: 540 MILLIGRAM (WEIGHT: 54 KG)
     Route: 041
     Dates: start: 20210105, end: 20210105
  7. INFLIXIMAB-DYYB [Suspect]
     Active Substance: INFLIXIMAB-DYYB
     Dosage: 530 MILLIGRAM (WEIGHT: 53 KG(
     Route: 041
     Dates: start: 20211213, end: 20211213
  8. MESALAMINE [Concomitant]
     Active Substance: MESALAMINE
     Dosage: 3000 MILLIGRAM, DAILY
     Route: 048
  9. MERCAPTOPURINE [Concomitant]
     Active Substance: MERCAPTOPURINE
     Dosage: 10 MILLIGRAM, DAILY
     Route: 048
     Dates: start: 20180912

REACTIONS (8)
  - Postoperative wound infection [Recovered/Resolved]
  - Sciatica [Recovered/Resolved]
  - Eye discharge [Unknown]
  - Cystitis [Unknown]
  - Pyrexia [Recovered/Resolved]
  - Zinc deficiency [Not Recovered/Not Resolved]
  - Off label use [Unknown]
  - Overdose [Unknown]

NARRATIVE: CASE EVENT DATE: 20181128
